FAERS Safety Report 25239925 (Version 1)
Quarter: 2025Q2

REPORT INFORMATION
  Report Type: Spontaneous
  Country: US (occurrence: US)
  Receive Date: 20250425
  Receipt Date: 20250425
  Transmission Date: 20250717
  Serious: Yes (Hospitalization, Other)
  Sender: ELI LILLY AND COMPANY
  Company Number: US-ELI_LILLY_AND_COMPANY-US202504013766

PATIENT
  Age: 78 Year
  Sex: Male
  Weight: 72.57 kg

DRUGS (3)
  1. CYMBALTA [Suspect]
     Active Substance: DULOXETINE HYDROCHLORIDE
     Indication: Product used for unknown indication
     Route: 065
  2. VYNDAMAX [Suspect]
     Active Substance: TAFAMIDIS
     Indication: Cardiac amyloidosis
     Dosage: 61 MG, DAILY
     Route: 065
     Dates: start: 202001
  3. DIFLUNISAL [Suspect]
     Active Substance: DIFLUNISAL
     Indication: Arthritis
     Route: 065

REACTIONS (8)
  - Pleural effusion [Unknown]
  - Gastrointestinal amyloidosis [Unknown]
  - Cardiac failure acute [Not Recovered/Not Resolved]
  - Renal injury [Unknown]
  - Pneumothorax [Unknown]
  - Neuropathy peripheral [Not Recovered/Not Resolved]
  - Skin lesion [Unknown]
  - Hypersomnia [Unknown]

NARRATIVE: CASE EVENT DATE: 20020101
